FAERS Safety Report 6486529-3 (Version None)
Quarter: 2009Q4

REPORT INFORMATION
  Report Type: 
  Country: None (occurrence: None)
  Receive Date: 20091210
  Receipt Date: 20091204
  Transmission Date: 20100525
  Serious: Yes (Hospitalization)
  Sender: FDA-Public Use
  Company Number: JP-JNJFOC-20090900965

PATIENT
  Sex: Male

DRUGS (9)
  1. RISPERDAL [Suspect]
     Indication: SCHIZOPHRENIA, RESIDUAL TYPE
     Route: 048
     Dates: start: 20080607, end: 20080718
  2. RISPERDAL [Suspect]
     Route: 048
     Dates: start: 20080719, end: 20090503
  3. NITRAZEPAM [Suspect]
     Indication: DRUG USE FOR UNKNOWN INDICATION
     Route: 048
  4. TELMISARTAN [Suspect]
     Indication: DRUG USE FOR UNKNOWN INDICATION
     Route: 048
  5. CEFDITOREN PIVOXIL [Concomitant]
     Route: 048
  6. AZUNOL [Concomitant]
  7. SERRAPEPTASE [Concomitant]
     Route: 048
  8. ALLEGRA [Concomitant]
     Route: 048
  9. OFLOXACIN [Concomitant]
     Indication: OTITIS EXTERNA
     Route: 001

REACTIONS (1)
  - HYPONATRAEMIA [None]
